FAERS Safety Report 11792556 (Version 1)
Quarter: 2015Q4

REPORT INFORMATION
  Report Type: Spontaneous
  Country: US (occurrence: US)
  Receive Date: 20151202
  Receipt Date: 20151202
  Transmission Date: 20160305
  Serious: No
  Sender: FDA-Public Use
  Company Number: US-APOTEX-2015AP007771

PATIENT
  Sex: Female

DRUGS (1)
  1. EPINASTINE HYDROCHLORIDE. [Suspect]
     Active Substance: EPINASTINE HYDROCHLORIDE
     Indication: EYE DISORDER
     Dosage: 1 GTT PER EYE, BID
     Route: 047

REACTIONS (1)
  - Overdose [Unknown]
